FAERS Safety Report 6969260-7 (Version None)
Quarter: 2010Q3

REPORT INFORMATION
  Report Type: 
  Country: None (occurrence: None)
  Receive Date: 20100907
  Receipt Date: 20100825
  Transmission Date: 20110219
  Serious: Yes (Hospitalization)
  Sender: FDA-Public Use
  Company Number: JP-ELI_LILLY_AND_COMPANY-JP201007006998

PATIENT
  Sex: Female
  Weight: 44 kg

DRUGS (5)
  1. CYMBALTA [Suspect]
     Indication: DEPRESSION
     Route: 048
  2. MEILAX [Concomitant]
  3. SOLANAX [Concomitant]
  4. DOGMATYL [Concomitant]
     Route: 048
  5. ZOLOFT [Concomitant]

REACTIONS (4)
  - ASCITES [None]
  - DECREASED APPETITE [None]
  - HEPATIC ATROPHY [None]
  - LIVER DISORDER [None]
